FAERS Safety Report 7503180-4 (Version None)
Quarter: 2011Q2

REPORT INFORMATION
  Report Type: 
  Country: None (occurrence: None)
  Receive Date: 20110525
  Receipt Date: 20101105
  Transmission Date: 20111010
  Serious: No
  Sender: FDA-Public Use
  Company Number: US-NOVEN-ALL1-2010-05822

PATIENT
  Sex: Male
  Weight: 92.971 kg

DRUGS (6)
  1. DAYTRANA [Suspect]
     Dosage: 20 MG, 1X/DAY:QD
     Route: 062
     Dates: start: 20060101, end: 20060101
  2. DAYTRANA [Suspect]
     Dosage: 20 MG, 1X/DAY:QD
     Route: 062
     Dates: start: 20101102
  3. ABILIFY [Concomitant]
     Dosage: 10 MG, 1X/DAY:QD
     Route: 048
     Dates: start: 20050101
  4. LYRICA [Concomitant]
     Dosage: 100 MG, 3X/DAY:TID
     Route: 048
     Dates: start: 20090101
  5. BUPROPION                          /00700502/ [Concomitant]
     Dosage: 300 MG, 1X/DAY:QD
     Route: 048
     Dates: start: 19920101
  6. CYMBALTA [Concomitant]
     Dosage: 60 MG, 1X/DAY:QD
     Route: 048
     Dates: start: 20070101

REACTIONS (4)
  - WRONG TECHNIQUE IN DRUG USAGE PROCESS [None]
  - OFF LABEL USE [None]
  - PRODUCT QUALITY ISSUE [None]
  - APPLICATION SITE PAIN [None]
